FAERS Safety Report 9103383 (Version 3)
Quarter: 2013Q2

REPORT INFORMATION
  Report Type: Report from Study
  Country: DE (occurrence: DE)
  Receive Date: 20130219
  Receipt Date: 20130604
  Transmission Date: 20140414
  Serious: Yes (Hospitalization, Other)
  Sender: FDA-Public Use
  Company Number: DE-UCBSA-078508

PATIENT
  Age: 47 Year
  Sex: Female

DRUGS (6)
  1. VIMPAT [Suspect]
     Indication: EPILEPSY
     Dosage: DAILY DOSE-100 MG PER DAY
     Dates: start: 20100420, end: 2010
  2. VIMPAT [Suspect]
     Indication: EPILEPSY
     Dosage: DAILY DOSE-300 MG/DAY
     Dates: start: 2010, end: 2010
  3. VIMPAT [Suspect]
     Indication: EPILEPSY
     Dosage: DAILY DOSE-200 MG /DAY
     Dates: start: 2010
  4. LEVETIRACETAM [Concomitant]
     Indication: EPILEPSY
     Dosage: DAILY DOSE-2500 MG/DAY
  5. LEVETIRACETAM [Concomitant]
     Indication: EPILEPSY
     Dosage: DAILY DOSE-2000 MG/DAY
  6. OXCARBAZEPINE [Concomitant]
     Indication: EPILEPSY
     Dosage: DAILY DOSE-1200 MG/DAY

REACTIONS (1)
  - Convulsion [Unknown]
